FAERS Safety Report 5303554-6 (Version None)
Quarter: 2007Q2

REPORT INFORMATION
  Report Type: 
  Country: None (occurrence: None)
  Receive Date: 20070420
  Receipt Date: 20070420
  Transmission Date: 20071010
  Serious: Yes (Life-Threatening, Hospitalization)
  Sender: FDA-Public Use
  Company Number: DE-BOEHRINGER INGELHEIM PHARMACEUTICALS, INC.-2007-DE-02235DE

PATIENT
  Sex: Female

DRUGS (4)
  1. SIFROL 0,18 MG [Suspect]
     Route: 048
  2. GABAPENTIN [Concomitant]
     Indication: DIABETIC NEUROPATHY
  3. THIOCTACID [Concomitant]
  4. INSULIN INTENS [Concomitant]

REACTIONS (5)
  - BLOOD PRESSURE DECREASED [None]
  - HAEMORRHAGE [None]
  - MYOCARDIAL INFARCTION [None]
  - NAUSEA [None]
  - PALLOR [None]
